FAERS Safety Report 6218947-2 (Version None)
Quarter: 2009Q2

REPORT INFORMATION
  Report Type: 
  Country: None (occurrence: None)
  Receive Date: 20090608
  Receipt Date: 20090529
  Transmission Date: 20091009
  Serious: Yes (Hospitalization, Other)
  Sender: FDA-Public Use
  Company Number: US-AMGEN-QUU349175

PATIENT
  Age: 59 Year

DRUGS (8)
  1. ENBREL [Suspect]
     Indication: PSORIASIS
  2. ENBREL [Suspect]
     Indication: RHEUMATOID ARTHRITIS
  3. ASPIRIN [Concomitant]
  4. CYMBALTA [Concomitant]
  5. ZYRTEC [Concomitant]
  6. PROTONIX [Concomitant]
  7. ALLOPURINOL [Concomitant]
  8. CELEBREX [Concomitant]

REACTIONS (6)
  - ARTHRITIS [None]
  - CARDIAC ARREST [None]
  - CARDIAC DISORDER [None]
  - ENDOCARDITIS [None]
  - STAPHYLOCOCCAL BACTERAEMIA [None]
  - SYSTEMIC LUPUS ERYTHEMATOSUS [None]
